FAERS Safety Report 8482159-2 (Version None)
Quarter: 2012Q3

REPORT INFORMATION
  Report Type: 
  Country: None (occurrence: None)
  Receive Date: 20120702
  Receipt Date: 20120618
  Transmission Date: 20120928
  Serious: No
  Sender: FDA-Public Use
  Company Number: US-ASTRAZENECA-2012SE37217

PATIENT
  Age: 64 Year
  Sex: Female
  Weight: 81.2 kg

DRUGS (2)
  1. SYMBICORT [Suspect]
     Indication: ASTHMA
     Dosage: 160/4.5 MCG, TWO PUFFS AS NEEDED
     Route: 055
     Dates: start: 20020101
  2. SYMBICORT [Suspect]
     Dosage: 160/4.5 MCG, 1 PUFF AS NEEDED
     Route: 055

REACTIONS (4)
  - COUGH [None]
  - INTENTIONAL DRUG MISUSE [None]
  - OFF LABEL USE [None]
  - FOREIGN BODY [None]
